FAERS Safety Report 9036842 (Version 2)
Quarter: 2013Q1

REPORT INFORMATION
  Report Type: Spontaneous
  Country: US (occurrence: None)
  Receive Date: 20121214
  Receipt Date: 20121231
  Transmission Date: 20140127
  Serious: Yes (Hospitalization)
  Sender: FDA-Public Use
  Company Number: 2012PROUSA02323

PATIENT
  Age: 70 Year
  Sex: Male
  Weight: 83.9 kg

DRUGS (2)
  1. PROVENGE (SIPULEUCEL-T) SUSPENSION, 250ML [Suspect]
     Indication: PROSTATE CANCER METASTATIC
     Route: 042
     Dates: start: 20121026, end: 20121026
  2. KEFL;EX (CEFALEXIN) [Concomitant]

REACTIONS (4)
  - Bacteraemia [None]
  - Product quality issue [None]
  - Acinetobacter test positive [None]
  - Product sterility lacking [None]
